FAERS Safety Report 8127159-7 (Version None)
Quarter: 2012Q1

REPORT INFORMATION
  Report Type: 
  Country: None (occurrence: None)
  Receive Date: 20120210
  Receipt Date: 20120201
  Transmission Date: 20120608
  Serious: Yes (Hospitalization)
  Sender: FDA-Public Use
  Company Number: US-PFIZER INC-2012029130

PATIENT
  Sex: Female
  Weight: 68 kg

DRUGS (5)
  1. POTASSIUM CHLORIDE [Concomitant]
     Indication: BLOOD POTASSIUM DECREASED
     Dosage: UNK
  2. REBIF [Suspect]
     Indication: MULTIPLE SCLEROSIS
     Dosage: 44 UG, 3 IN 1 WEEK
     Route: 058
     Dates: start: 20111106
  3. ACETAMINOPHEN [Concomitant]
     Indication: PREMEDICATION
     Dosage: UNK
  4. SOLU-MEDROL [Suspect]
     Indication: MULTIPLE SCLEROSIS RELAPSE
  5. MOTRIN [Concomitant]
     Indication: PREMEDICATION
     Dosage: UNK

REACTIONS (3)
  - HYPERSENSITIVITY [None]
  - BLOOD POTASSIUM DECREASED [None]
  - MULTIPLE SCLEROSIS RELAPSE [None]
